FAERS Safety Report 25183601 (Version 1)
Quarter: 2025Q2

REPORT INFORMATION
  Report Type: Report from Study
  Country: US (occurrence: US)
  Receive Date: 20250410
  Receipt Date: 20250410
  Transmission Date: 20250716
  Serious: No
  Sender: UCB
  Company Number: US-UCBSA-2024014797

PATIENT
  Age: 25 Year
  Sex: Male

DRUGS (2)
  1. FINTEPLA [Suspect]
     Active Substance: FENFLURAMINE
     Indication: Lennox-Gastaut syndrome
     Dosage: 7 MILLILITER, 2X/DAY (BID)
     Dates: start: 20231216
  2. FINTEPLA [Suspect]
     Active Substance: FENFLURAMINE
     Dosage: 22 MILLIGRAM, ONCE DAILY (QD)

REACTIONS (3)
  - Mitral valve prolapse [Unknown]
  - Off label use [Unknown]
  - Prescribed overdose [Unknown]

NARRATIVE: CASE EVENT DATE: 20231216
